FAERS Safety Report 7156688-8 (Version None)
Quarter: 2010Q4

REPORT INFORMATION
  Report Type: 
  Country: None (occurrence: None)
  Receive Date: 20101214
  Receipt Date: 20091125
  Transmission Date: 20110411
  Serious: No
  Sender: FDA-Public Use
  Company Number: US-ASTRAZENECA-2009SE28982

PATIENT
  Sex: Male

DRUGS (3)
  1. CRESTOR [Suspect]
     Dosage: AT MORNING
     Route: 048
  2. ASPIRIN [Concomitant]
  3. METFORMIN [Concomitant]

REACTIONS (4)
  - FLUSHING [None]
  - ILL-DEFINED DISORDER [None]
  - PAIN IN EXTREMITY [None]
  - POOR QUALITY SLEEP [None]
